FAERS Safety Report 21098120 (Version 5)
Quarter: 2022Q4

REPORT INFORMATION
  Report Type: Report from Study
  Country: US (occurrence: US)
  Receive Date: 20220719
  Receipt Date: 20221213
  Transmission Date: 20230113
  Serious: Yes (Other)
  Sender: FDA-Public Use
  Company Number: US-BRISTOL-MYERS SQUIBB COMPANY-2022-033948

PATIENT
  Age: 74 Year
  Sex: Female
  Weight: 90.9 kg

DRUGS (15)
  1. REVLIMID [Suspect]
     Active Substance: LENALIDOMIDE
     Indication: Plasma cell myeloma
     Dosage: DAYS 1-14 ,7DAYS OFF
     Route: 048
     Dates: start: 20210702
  2. REVLIMID [Suspect]
     Active Substance: LENALIDOMIDE
     Dosage: 14 OUT OF 21 DAYS
     Route: 048
     Dates: start: 20210702
  3. REVLIMID [Suspect]
     Active Substance: LENALIDOMIDE
     Route: 048
  4. REVLIMID [Suspect]
     Active Substance: LENALIDOMIDE
     Dates: start: 20210616
  5. REVLIMID [Suspect]
     Active Substance: LENALIDOMIDE
     Dosage: TAKE 1 CAPSULE DAILY
     Route: 048
     Dates: start: 20210602
  6. CARVEDILOL [Suspect]
     Active Substance: CARVEDILOL
     Indication: Dizziness
  7. HYDROCHLOROTHIAZIDE\SPIRONOLACTONE [Suspect]
     Active Substance: HYDROCHLOROTHIAZIDE\SPIRONOLACTONE
     Indication: Dizziness
  8. DECADRON [Concomitant]
     Active Substance: DEXAMETHASONE
  9. VITAMIN C [Concomitant]
     Active Substance: ASCORBIC ACID
     Indication: Product used for unknown indication
     Route: 048
  10. ALBUTEROL SULFATE [Concomitant]
     Active Substance: ALBUTEROL SULFATE
     Indication: Product used for unknown indication
     Route: 048
  11. ASPIRIN [Concomitant]
     Active Substance: ASPIRIN
     Indication: Product used for unknown indication
     Route: 048
  12. VITAMIN D3 [Concomitant]
     Active Substance: CHOLECALCIFEROL
     Indication: Product used for unknown indication
     Route: 048
  13. VELCADE [Concomitant]
     Active Substance: BORTEZOMIB
     Indication: Product used for unknown indication
     Route: 048
  14. FLONASE ALLERGY RELIEF [Concomitant]
     Active Substance: FLUTICASONE PROPIONATE
     Indication: Product used for unknown indication
  15. STOOL SOFTENER (DOCUSATE) [Concomitant]
     Active Substance: DOCUSATE
     Indication: Product used for unknown indication

REACTIONS (16)
  - Ageusia [Recovering/Resolving]
  - Neuropathy peripheral [Unknown]
  - Asthenia [Unknown]
  - Arthritis [Unknown]
  - Dry mouth [Unknown]
  - Eye pruritus [Unknown]
  - Paranasal sinus hypersecretion [Unknown]
  - Fatigue [Unknown]
  - Nail bed disorder [Unknown]
  - Tremor [Unknown]
  - Dizziness [Unknown]
  - Weight decreased [Unknown]
  - Off label use [Unknown]
  - Hypotension [Unknown]
  - Product supply issue [Unknown]
  - Rash pruritic [Unknown]

NARRATIVE: CASE EVENT DATE: 20210616
